FAERS Safety Report 5119101-8 (Version None)
Quarter: 2006Q3

REPORT INFORMATION
  Report Type: 
  Country: None (occurrence: None)
  Receive Date: 20060925
  Receipt Date: 20060920
  Transmission Date: 20061208
  Serious: Yes (Hospitalization)
  Sender: FDA-Public Use
  Company Number: HQWYE934820SEP06

PATIENT
  Sex: Male

DRUGS (1)
  1. CORDARONE [Suspect]
     Dates: end: 20050101

REACTIONS (2)
  - CARDIAC DISORDER [None]
  - HYPERTHYROIDISM [None]
